FAERS Safety Report 22190391 (Version 1)
Quarter: 2023Q2

REPORT INFORMATION
  Report Type: Spontaneous
  Country: CZ (occurrence: CZ)
  Receive Date: 20230410
  Receipt Date: 20230410
  Transmission Date: 20230722
  Serious: Yes (Life-Threatening, Hospitalization, Other)
  Sender: FDA-Public Use
  Company Number: CZ-EMA-DD-20200915-abdul_j-115130

PATIENT

DRUGS (12)
  1. ROSUVASTATIN [Suspect]
     Active Substance: ROSUVASTATIN
     Indication: Product used for unknown indication
     Route: 065
  2. ROSUVASTATIN [Suspect]
     Active Substance: ROSUVASTATIN
     Dosage: MISTAKENLY CO-ADMINISTERED 3 ROSUVASTATIN FORMULATIONS WITH DIFFERENT BRAND NAMES
     Route: 065
  3. WARFARIN [Suspect]
     Active Substance: WARFARIN
     Indication: Product used for unknown indication
     Route: 065
  4. ROSUVASTATIN CALCIUM [Suspect]
     Active Substance: ROSUVASTATIN CALCIUM
     Indication: Product used for unknown indication
     Dosage: MISTAKENLY CO-ADMINISTERED 3 ROSUVASTATIN FORMULATIONS WITH DIFFERENT BRAND NAMES
     Route: 065
  5. ROSUVASTATIN CALCIUM [Suspect]
     Active Substance: ROSUVASTATIN CALCIUM
     Indication: Product used for unknown indication
     Dosage: MISTAKENLY CO-ADMINISTERED 3 ROSUVASTATIN FORMULATIONS WITH DIFFERENT BRAND NAMES
     Route: 065
  6. SOLIFENACIN [Concomitant]
     Active Substance: SOLIFENACIN
     Indication: Product used for unknown indication
     Dosage: 5-10 MG/DAY
     Route: 065
  7. SOLIFENACIN [Concomitant]
     Active Substance: SOLIFENACIN
     Dosage: 5-10 MG/DAY
     Route: 065
  8. TAMSULOSIN [Concomitant]
     Active Substance: TAMSULOSIN
     Indication: Product used for unknown indication
     Route: 065
  9. FINASTERIDE [Concomitant]
     Active Substance: FINASTERIDE
     Indication: Product used for unknown indication
     Route: 065
  10. RILMENIDINE [Concomitant]
     Active Substance: RILMENIDINE
     Indication: Product used for unknown indication
     Route: 065
  11. INSULIN LISPRO [Concomitant]
     Active Substance: INSULIN LISPRO
     Indication: Product used for unknown indication
     Route: 065
  12. INSULIN GLARGINE [Concomitant]
     Active Substance: INSULIN GLARGINE
     Indication: Product used for unknown indication
     Route: 065

REACTIONS (12)
  - Bedridden [Recovering/Resolving]
  - Drug clearance decreased [Recovering/Resolving]
  - Product administration error [Unknown]
  - Contraindicated product administered [Unknown]
  - Overdose [Unknown]
  - Toxicity to various agents [Unknown]
  - Product name confusion [Unknown]
  - Drug interaction [Unknown]
  - International normalised ratio increased [Recovering/Resolving]
  - Rhabdomyolysis [Recovering/Resolving]
  - Acute kidney injury [Recovering/Resolving]
  - Constipation [Unknown]
